FAERS Safety Report 6704514-0 (Version None)
Quarter: 2010Q2

REPORT INFORMATION
  Report Type: 
  Country: None (occurrence: None)
  Receive Date: 20100430
  Receipt Date: 20100420
  Transmission Date: 20101027
  Serious: No
  Sender: FDA-Public Use
  Company Number: US-ELI_LILLY_AND_COMPANY-US201004006353

PATIENT
  Sex: Female

DRUGS (1)
  1. CIALIS [Suspect]
     Indication: POOR PERIPHERAL CIRCULATION
     Dosage: 2.5 MG, UNKNOWN
     Dates: start: 20100217

REACTIONS (3)
  - OFF LABEL USE [None]
  - VISION BLURRED [None]
  - VISUAL ACUITY REDUCED [None]
